FAERS Safety Report 11196695 (Version 1)
Quarter: 2015Q2

REPORT INFORMATION
  Report Type: Spontaneous
  Country: US (occurrence: None)
  Receive Date: 20150616
  Receipt Date: 20150616
  Transmission Date: 20150821
  Serious: Yes (Other)
  Sender: FDA-Public Use
  Company Number: None

PATIENT
  Age: 67 Year
  Sex: Female
  Weight: 86.18 kg

DRUGS (10)
  1. NIACIN (B3) [Concomitant]
  2. VITAMIN E [Concomitant]
     Active Substance: .ALPHA.-TOCOPHEROL
  3. FISH OIL [Concomitant]
     Active Substance: FISH OIL
  4. PLUS GENERAL B [Concomitant]
  5. ASPIRIN. [Concomitant]
     Active Substance: ASPIRIN
  6. CHROMIUM PICCOLATE [Concomitant]
  7. ZINC [Concomitant]
     Active Substance: ZINC\ZINC CHLORIDE
  8. PLAVIX [Concomitant]
     Active Substance: CLOPIDOGREL BISULFATE
  9. HAWTHORN BERRY [Concomitant]
  10. ISOSORBIDE DINITRATE 5 MG [Suspect]
     Active Substance: ISOSORBIDE DINITRATE
     Indication: ANGINA PECTORIS
     Dosage: 1  TWICE DAILY  TAKEN BY MOUTH
     Route: 048
     Dates: start: 20150609, end: 20150612

REACTIONS (2)
  - Gastric haemorrhage [None]
  - Intestinal haemorrhage [None]

NARRATIVE: CASE EVENT DATE: 20150609
